FAERS Safety Report 4576796-5 (Version None)
Quarter: 2005Q1

REPORT INFORMATION
  Report Type: 
  Country: None (occurrence: None)
  Receive Date: 20050207
  Receipt Date: 20050124
  Transmission Date: 20050727
  Serious: Yes (Death)
  Sender: FDA-Public Use
  Company Number: 2004BI002061

PATIENT
  Age: 71 Year
  Sex: Female

DRUGS (2)
  1. AVONEX [Suspect]
     Indication: MULTIPLE SCLEROSIS
     Dosage: 30 UG;QW;IM
     Route: 030
     Dates: start: 19970501, end: 20030509
  2. CHEMOTHERAPY (CANCER) [Concomitant]

REACTIONS (5)
  - DYSPNOEA [None]
  - ENDOMETRIAL CANCER METASTATIC [None]
  - METASTASES TO BONE [None]
  - METASTASES TO LUNG [None]
  - NERVOUS SYSTEM DISORDER [None]
